FAERS Safety Report 10156350 (Version 2)
Quarter: 2014Q2

REPORT INFORMATION
  Report Type: Spontaneous
  Country: US (occurrence: US)
  Receive Date: 20140507
  Receipt Date: 20140507
  Transmission Date: 20141212
  Serious: No
  Sender: FDA-Public Use
  Company Number: US-009507513-0606USA04832

PATIENT
  Age: 71 Year
  Sex: Female

DRUGS (3)
  1. FOSAMAX [Suspect]
     Indication: OSTEOPOROSIS
     Dosage: 10 MG, QD
     Route: 048
     Dates: start: 20001128
  2. VITAMIN D (UNSPECIFIED) [Concomitant]
  3. CALCIUM (UNSPECIFIED) [Concomitant]

REACTIONS (7)
  - Bone density decreased [Not Recovered/Not Resolved]
  - Adverse event [Unknown]
  - Restless legs syndrome [Unknown]
  - Scoliosis [Unknown]
  - Pain [Unknown]
  - Drug ineffective [Not Recovered/Not Resolved]
  - Arthralgia [Unknown]
